FAERS Safety Report 7958384-3 (Version None)
Quarter: 2011Q4

REPORT INFORMATION
  Report Type: 
  Country: None (occurrence: None)
  Receive Date: 20111205
  Receipt Date: 20111201
  Transmission Date: 20120403
  Serious: Yes (Hospitalization)
  Sender: FDA-Public Use
  Company Number: US-MERCK-1110USA00465

PATIENT
  Age: 60 Year
  Sex: Female

DRUGS (10)
  1. FOSAMAX [Suspect]
     Route: 048
     Dates: start: 20010601, end: 20080201
  2. VITAMIN E [Concomitant]
     Route: 065
     Dates: start: 20000101
  3. VITAMIN D (UNSPECIFIED) [Concomitant]
     Route: 065
     Dates: start: 20000101
  4. ALENDRONATE SODIUM [Suspect]
     Indication: OSTEOPOROSIS
     Route: 065
  5. HORMONES (UNSPECIFIED) [Concomitant]
     Route: 065
     Dates: start: 20000101, end: 20110201
  6. FOSAMAX [Suspect]
     Route: 048
     Dates: start: 20080201, end: 20100101
  7. FEXOFENADINE HYDROCHLORIDE [Concomitant]
     Indication: HYPERSENSITIVITY
     Route: 065
     Dates: start: 20051201
  8. FOSAMAX [Suspect]
     Indication: OSTEOPOROSIS
     Route: 048
     Dates: start: 20000501, end: 20010501
  9. CALCIUM (UNSPECIFIED) [Concomitant]
     Route: 065
     Dates: start: 20000101
  10. PREMPRO [Concomitant]
     Indication: OSTEOPOROSIS
     Route: 065
     Dates: start: 20000517

REACTIONS (7)
  - BLOOD POTASSIUM DECREASED [None]
  - CALCIUM DEFICIENCY [None]
  - MUSCULOSKELETAL DISORDER [None]
  - VITAMIN D DEFICIENCY [None]
  - FEMUR FRACTURE [None]
  - URINARY TRACT DISORDER [None]
  - HYPERTENSION [None]
